FAERS Safety Report 20033687 (Version 2)
Quarter: 2021Q4

REPORT INFORMATION
  Report Type: Report from Study
  Country: CN (occurrence: None)
  Receive Date: 20211104
  Receipt Date: 20211215
  Transmission Date: 20220303
  Serious: Yes (Hospitalization)
  Sender: FDA-Public Use
  Company Number: 2021A788419

PATIENT
  Age: 68 Year
  Sex: Male

DRUGS (41)
  1. DURVALUMAB [Suspect]
     Active Substance: DURVALUMAB
     Indication: Oesophageal squamous cell carcinoma
     Dosage: 1500.0 MG
     Route: 042
     Dates: start: 20210923, end: 20210923
  2. RADIATION THERAPY [Suspect]
     Active Substance: RADIATION THERAPY
     Indication: Oesophageal squamous cell carcinoma
     Route: 065
  3. CISPLATIN [Suspect]
     Active Substance: CISPLATIN
     Indication: Oesophageal squamous cell carcinoma
     Route: 065
  4. FLUOROURACIL [Suspect]
     Active Substance: FLUOROURACIL
     Indication: Oesophageal squamous cell carcinoma
     Route: 065
  5. RECOMBINANT HUMAN THROMBOPOIETIN INJECTION [Concomitant]
     Indication: Plateletcrit
     Dosage: 1.5 WU ONCE/SINGLE ADMINISTRATION
     Route: 058
     Dates: start: 20211027, end: 20211028
  6. OMEPRAZOLE SODIUM FOR INJECTION [Concomitant]
     Indication: Protein total
     Dosage: 40.0MG ONCE/SINGLE ADMINISTRATION
     Route: 042
     Dates: start: 20210923, end: 20210929
  7. AZASETRON HYDROCHLORIDE INJECTION [Concomitant]
     Indication: Antibiotic prophylaxis
     Dosage: 2.0ML ONCE/SINGLE ADMINISTRATION
     Route: 042
     Dates: start: 20210923, end: 20210929
  8. AZASETRON HYDROCHLORIDE INJECTION [Concomitant]
     Indication: Antibiotic prophylaxis
     Dosage: 2.0ML ONCE/SINGLE ADMINISTRATION
     Route: 042
     Dates: start: 20211019, end: 20211025
  9. FUROSEMIDE [Concomitant]
     Active Substance: FUROSEMIDE
     Indication: Polyuria
     Dosage: 20.0MG ONCE/SINGLE ADMINISTRATION
     Route: 042
     Dates: start: 20210922, end: 20210929
  10. FUROSEMIDE [Concomitant]
     Active Substance: FUROSEMIDE
     Indication: Polyuria
     Dosage: 20.0ML ONCE/SINGLE ADMINISTRATION
     Route: 042
     Dates: start: 20211018, end: 20211021
  11. RECOMBINANT HUMAN GRANULOCYTE COLONY-STIMULATING FACTOR INJECTION [Concomitant]
     Indication: Prophylaxis
     Dosage: 3.0MG ONCE/SINGLE ADMINISTRATION
     Route: 058
     Dates: start: 20210928, end: 20210928
  12. RECOMBINANT HUMAN GRANULOCYTE COLONY-STIMULATING FACTOR INJECTION [Concomitant]
     Indication: Prophylaxis
     Dosage: 6.0MG ONCE/SINGLE ADMINISTRATION
     Route: 058
     Dates: start: 20211024, end: 20211024
  13. 5%GLUCOSE INJECTION [Concomitant]
     Indication: Dehydration
     Dosage: 500.0ML ONCE/SINGLE ADMINISTRATION
     Route: 042
     Dates: start: 20210922, end: 20210927
  14. 5%GLUCOSE INJECTION [Concomitant]
     Indication: Dehydration
     Dosage: 500.0ML ONCE/SINGLE ADMINISTRATION
     Route: 042
     Dates: start: 20211018, end: 20211025
  15. 0.9%SODIUM CHLORIDE INJECTION [Concomitant]
     Indication: Dehydration
     Route: 042
     Dates: start: 20211018, end: 20211018
  16. 0.9%SODIUM CHLORIDE INJECTION [Concomitant]
     Indication: Dehydration
     Dosage: 500.0ML ONCE/SINGLE ADMINISTRATION
     Route: 042
     Dates: start: 20211019, end: 20211021
  17. 10%POTASSIUM CHLORIDE INJECTION [Concomitant]
     Indication: Dehydration
     Route: 042
     Dates: start: 20211018, end: 20211018
  18. 10%POTASSIUM CHLORIDE INJECTION [Concomitant]
     Indication: Dehydration
     Dosage: 10.0ML ONCE/SINGLE ADMINISTRATION
     Route: 042
     Dates: start: 20211019, end: 20211025
  19. CARBOHYDRATE AND ELECTROLYTE INJECTION [Concomitant]
     Indication: Dehydration
     Dosage: 500.0ML ONCE/SINGLE ADMINISTRATION
     Route: 042
     Dates: start: 20210922, end: 20210929
  20. AMINO ACIDS, SOURCE UNSPECIFIED [Concomitant]
     Active Substance: AMINO ACIDS, SOURCE UNSPECIFIED
     Indication: Dehydration
     Dosage: 250.0ML ONCE/SINGLE ADMINISTRATION
     Route: 042
     Dates: start: 20211018, end: 20211028
  21. AMINO ACIDS, SOURCE UNSPECIFIED [Concomitant]
     Active Substance: AMINO ACIDS, SOURCE UNSPECIFIED
     Indication: Nutritional supplementation
     Dosage: 250.0ML ONCE/SINGLE ADMINISTRATION
     Route: 042
     Dates: start: 20211018, end: 20211028
  22. INTACTED PROTEIN ENTERAL NUTRITION POWDER [Concomitant]
     Indication: Nutritional supplementation
     Route: 048
     Dates: start: 20211018, end: 20211028
  23. INTACTED PROTEIN ENTERAL NUTRITION POWDER [Concomitant]
     Indication: Nutritional supplementation
     Dosage: 42.0 G 5 TIMES PER DAY
     Route: 048
     Dates: start: 20211009, end: 20211015
  24. 20%MEDIUM AND LONG CHAIN FAT EMULSION INJECTION [Concomitant]
     Indication: Nutritional supplementation
     Dosage: 250.0ML ONCE/SINGLE ADMINISTRATION
     Route: 042
     Dates: start: 20211018, end: 20211027
  25. LANSOPRAZOLE FOR INJECTION [Concomitant]
     Indication: Gastric disorder
     Dosage: 30.0MG ONCE/SINGLE ADMINISTRATION
     Route: 042
     Dates: start: 20211019, end: 20211019
  26. 5%GLUCOSE AND SODIUM CHLORIDE INJECTION [Concomitant]
     Indication: Dehydration
     Dosage: 500.0ML ONCE/SINGLE ADMINISTRATION
     Route: 042
     Dates: start: 20211020, end: 20211020
  27. OXYCODONE HYDROCHLORIDE PROLONGED-RELEASE TABLETS [Concomitant]
     Indication: Stomatitis
     Route: 048
     Dates: start: 20211023, end: 20211028
  28. LIPOSYN (R) INTRAVENOUS FAT EMULSION [Concomitant]
     Active Substance: LIPOSYN (R) INTRAVENOUS FAT EMULSION
     Indication: Nutritional supplementation
     Dosage: 250.0ML ONCE/SINGLE ADMINISTRATION
     Route: 042
     Dates: start: 20211027, end: 20211028
  29. 5%SODIUM BICARBONATE INJECTION [Concomitant]
     Indication: Stomatitis
     Dosage: 250.0ML ONCE/SINGLE ADMINISTRATION
     Route: 050
     Dates: start: 20211019, end: 20211019
  30. 5%SODIUM BICARBONATE INJECTION [Concomitant]
     Indication: Alkalosis
     Dosage: 250.0ML ONCE/SINGLE ADMINISTRATION
     Route: 050
     Dates: start: 20211019, end: 20211019
  31. 5%SODIUM BICARBONATE INJECTION [Concomitant]
     Indication: Stomatitis
     Dosage: 125.0ML ONCE/SINGLE ADMINISTRATION
     Route: 042
     Dates: start: 20211019, end: 20211019
  32. 5%SODIUM BICARBONATE INJECTION [Concomitant]
     Indication: Alkalosis
     Dosage: 125.0ML ONCE/SINGLE ADMINISTRATION
     Route: 042
     Dates: start: 20211019, end: 20211019
  33. LIDOCAINE HYDROCHLORIDE [Concomitant]
     Active Substance: LIDOCAINE HYDROCHLORIDE
     Indication: Stomatitis
     Dosage: 25.0ML ONCE/SINGLE ADMINISTRATION
     Route: 050
     Dates: start: 20211020, end: 20211021
  34. LIDOCAINE HYDROCHLORIDE [Concomitant]
     Active Substance: LIDOCAINE HYDROCHLORIDE
     Indication: Stomatitis
     Dosage: 25.0ML ONCE/SINGLE ADMINISTRATION
     Route: 050
     Dates: start: 20211024, end: 20211028
  35. 10%GLUCOSE INJECTION [Concomitant]
     Indication: Nutritional supplementation
     Dosage: 400.0ML ONCE/SINGLE ADMINISTRATION
     Route: 042
     Dates: start: 20211022, end: 20211022
  36. 50%GLUCOSE INJECTION [Concomitant]
     Indication: Nutritional supplementation
     Dosage: 100.0ML ONCE/SINGLE ADMINISTRATION
     Route: 042
     Dates: start: 20211022, end: 20211022
  37. 10%CONCENTRATED SODIUM CHLORIDE INJECTION [Concomitant]
     Indication: Nutritional supplementation
     Dosage: 10.0ML ONCE/SINGLE ADMINISTRATION
     Route: 042
     Dates: start: 20211022, end: 20211022
  38. INSULIN NOS [Concomitant]
     Active Substance: INSULIN NOS
     Indication: Nutritional supplementation
     Dosage: 13.0IU ONCE/SINGLE ADMINISTRATION
     Route: 042
     Dates: start: 20211022, end: 20211022
  39. RECOMBINANT HUMAN INTERLEUKIN 11 FOR INJECTION [Concomitant]
     Indication: Stomatitis
     Dosage: 3.0MG ONCE/SINGLE ADMINISTRATION
     Route: 050
     Dates: start: 20211025, end: 20211028
  40. SUCRALFATE ORAL LIQUID [Concomitant]
     Indication: Prophylaxis
     Route: 048
     Dates: start: 20211009, end: 20211015
  41. SHENG XUE BAO HE JI [Concomitant]
     Indication: Anaemia
     Route: 048
     Dates: start: 20211009, end: 20211015

REACTIONS (1)
  - Platelet count decreased [Recovered/Resolved]

NARRATIVE: CASE EVENT DATE: 20211027
